FAERS Safety Report 6938171-5 (Version None)
Quarter: 2010Q3

REPORT INFORMATION
  Report Type: 
  Country: None (occurrence: None)
  Receive Date: 20100824
  Receipt Date: 20100811
  Transmission Date: 20110219
  Serious: Yes (Death, Hospitalization, Other)
  Sender: FDA-Public Use
  Company Number: SE-BAYER-201035751GPV

PATIENT
  Age: 55 Year
  Sex: Male
  Weight: 71 kg

DRUGS (8)
  1. SORAFENIB [Suspect]
     Indication: HEPATIC NEOPLASM MALIGNANT
     Route: 048
     Dates: start: 20100525, end: 20100705
  2. CLARITIN [Concomitant]
     Dates: start: 20100505, end: 20100726
  3. FLUCONAZOLE [Concomitant]
     Dates: start: 20100705, end: 20100722
  4. PRIMPERAN TAB [Concomitant]
     Dates: start: 20100517, end: 20100726
  5. SPIRONOLACTONE [Concomitant]
     Dates: start: 20100505, end: 20100707
  6. SPIRIVA [Concomitant]
     Dates: start: 20100517, end: 20100720
  7. TRADOLAN [Concomitant]
     Dates: start: 20100428, end: 20100725
  8. ZEFFIX [Concomitant]
     Dates: start: 20100603, end: 20100724

REACTIONS (4)
  - EPISTAXIS [None]
  - HAEMATEMESIS [None]
  - HEPATIC FAILURE [None]
  - RENAL FAILURE [None]
